FAERS Safety Report 6117279-0 (Version None)
Quarter: 2009Q1

REPORT INFORMATION
  Report Type: 
  Country: None (occurrence: None)
  Receive Date: 20090314
  Receipt Date: 20090112
  Transmission Date: 20090719
  Serious: No
  Sender: FDA-Public Use
  Company Number: US-ABBOTT-09P-163-0497140-00

PATIENT
  Sex: Female
  Weight: 54.48 kg

DRUGS (5)
  1. HUMIRA [Suspect]
     Indication: CROHN'S DISEASE
     Dates: start: 20081226
  2. FLAGYL [Concomitant]
     Indication: CROHN'S DISEASE
  3. PREVACID [Concomitant]
     Indication: DRUG USE FOR UNKNOWN INDICATION
  4. BALSALAZIDE [Concomitant]
     Indication: CROHN'S DISEASE
  5. PROCTOFOAM [Concomitant]
     Indication: HAEMORRHOIDS

REACTIONS (1)
  - INJECTION SITE PAIN [None]
